FAERS Safety Report 10162075 (Version 2)
Quarter: 2014Q2

REPORT INFORMATION
  Report Type: Spontaneous
  Country: US (occurrence: US)
  Receive Date: 20140509
  Receipt Date: 20140509
  Transmission Date: 20141212
  Serious: Yes (Other)
  Sender: FDA-Public Use
  Company Number: US-ASTRAZENECA-2014SE30556

PATIENT
  Age: 82 Year
  Sex: Female
  Weight: 65.8 kg

DRUGS (8)
  1. ATACAND [Suspect]
     Indication: HYPERTENSION
     Route: 048
  2. METOPROLOL SUCCINATE [Suspect]
     Indication: BLOOD PRESSURE ABNORMAL
     Route: 048
     Dates: start: 201304
  3. VERAPAMIL [Concomitant]
     Indication: CARDIAC DISORDER
     Route: 048
  4. VITAMIN B12 [Concomitant]
     Indication: VITAMIN SUPPLEMENTATION
     Route: 048
     Dates: start: 2009
  5. VITAMIN D3 [Concomitant]
     Indication: BONE DISORDER
     Route: 048
     Dates: start: 2009
  6. XARELTO [Concomitant]
     Indication: ANTICOAGULANT THERAPY
     Route: 048
  7. XARELTO [Concomitant]
     Indication: ANTICOAGULANT THERAPY
     Route: 048
     Dates: start: 201404
  8. GENERIC MEDICATIONS [Concomitant]

REACTIONS (14)
  - Heart rate abnormal [Unknown]
  - Cardiovascular disorder [Unknown]
  - Cardiovascular disorder [Unknown]
  - Atrial fibrillation [Unknown]
  - Scoliosis [Unknown]
  - Bone disorder [Unknown]
  - Epistaxis [Unknown]
  - Malaise [Unknown]
  - Dyspnoea [Unknown]
  - Fatigue [Unknown]
  - Weight increased [Unknown]
  - Body height decreased [Not Recovered/Not Resolved]
  - Haemoglobin decreased [Unknown]
  - Off label use [Unknown]
